FAERS Safety Report 7780749-3 (Version None)
Quarter: 2011Q3

REPORT INFORMATION
  Report Type: 
  Country: None (occurrence: None)
  Receive Date: 20110927
  Receipt Date: 20110729
  Transmission Date: 20111222
  Serious: No
  Sender: FDA-Public Use
  Company Number: US-BRISTOL-MYERS SQUIBB COMPANY-15921224

PATIENT
  Age: 57 Year
  Sex: Female

DRUGS (1)
  1. AVAPRO [Suspect]
     Indication: HYPERTENSION
     Dosage: FOR MANY YEARS,STARTED NEW BOTTLE 1 DF = 150 (UNITS NOT SPECIFIED)
     Route: 048
     Dates: start: 20090101

REACTIONS (4)
  - DRUG INEFFECTIVE [None]
  - ANXIETY [None]
  - HYPERTENSION [None]
  - HEADACHE [None]
